FAERS Safety Report 12769900 (Version 1)
Quarter: 2016Q3

REPORT INFORMATION
  Report Type: Report from Study
  Country: CA (occurrence: CA)
  Receive Date: 20160922
  Receipt Date: 20160922
  Transmission Date: 20161109
  Serious: Yes (Death, Other)
  Sender: FDA-Public Use
  Company Number: CA-ROCHE-1833203

PATIENT
  Age: 12 Year
  Sex: Female
  Weight: 28.4 kg

DRUGS (1)
  1. BEVACIZUMAB [Suspect]
     Active Substance: BEVACIZUMAB
     Indication: MEDULLOBLASTOMA
     Dosage: DATE OF LAST DOSE PRIOR TO SAE: 19/SEP/2014
     Route: 065
     Dates: start: 20140905

REACTIONS (6)
  - Neutrophil count decreased [Unknown]
  - Diarrhoea [Unknown]
  - Febrile neutropenia [Unknown]
  - Anaemia [Unknown]
  - Death [Fatal]
  - Decreased appetite [Unknown]

NARRATIVE: CASE EVENT DATE: 20150129
